FAERS Safety Report 9210375 (Version 1)
Quarter: 2013Q2

REPORT INFORMATION
  Report Type: Spontaneous
  Country: US (occurrence: US)
  Receive Date: 20130404
  Receipt Date: 20130404
  Transmission Date: 20140414
  Serious: Yes (Hospitalization, Other)
  Sender: FDA-Public Use
  Company Number: US-ASTRAZENECA-2005UW02804

PATIENT
  Age: 73 Year
  Sex: Female
  Weight: 65.8 kg

DRUGS (5)
  1. TOPROL XL [Suspect]
     Indication: HYPERTENSION
     Route: 048
  2. CRESTOR [Suspect]
     Indication: BLOOD CHOLESTEROL ABNORMAL
     Route: 048
  3. SIMVASTATIN [Suspect]
     Route: 065
  4. KLONOPIN [Concomitant]
  5. REMERON [Concomitant]

REACTIONS (7)
  - Oesophageal spasm [Recovered/Resolved]
  - Blood pressure increased [Recovered/Resolved]
  - Transient ischaemic attack [Unknown]
  - Speech disorder [Unknown]
  - Muscle spasms [Unknown]
  - Muscular weakness [Unknown]
  - Intentional drug misuse [Unknown]
